FAERS Safety Report 23642973 (Version 4)
Quarter: 2024Q2

REPORT INFORMATION
  Report Type: Report from Study
  Country: CA (occurrence: CA)
  Receive Date: 20240318
  Receipt Date: 20240427
  Transmission Date: 20240716
  Serious: Yes (Hospitalization, Other)
  Sender: FDA-Public Use
  Company Number: CA-CELLTRION INC.-2024CA006247

PATIENT

DRUGS (2)
  1. TRUXIMA [Suspect]
     Active Substance: RITUXIMAB-ABBS
     Indication: Fibrillary glomerulonephritis
     Dosage: 700 MG, INF# 3
     Route: 042
     Dates: start: 20240222
  2. TRUXIMA [Suspect]
     Active Substance: RITUXIMAB-ABBS
     Dosage: 700 MG, INF# 4 (4WKS)
     Route: 042
     Dates: start: 20240222

REACTIONS (5)
  - Renal disorder [Recovered/Resolved]
  - Ill-defined disorder [Unknown]
  - Asthma [Unknown]
  - Intentional product use issue [Unknown]
  - Intentional dose omission [Unknown]

NARRATIVE: CASE EVENT DATE: 20240315
